FAERS Safety Report 6551581-3 (Version None)
Quarter: 2010Q1

REPORT INFORMATION
  Report Type: 
  Country: None (occurrence: None)
  Receive Date: 20100126
  Receipt Date: 20100115
  Transmission Date: 20100710
  Serious: Yes (Hospitalization)
  Sender: FDA-Public Use
  Company Number: CA-JNJFOC-20090202142

PATIENT
  Sex: Male
  Weight: 69 kg

DRUGS (18)
  1. REMICADE [Suspect]
     Indication: RHEUMATOID ARTHRITIS
     Route: 042
  2. ASPIRIN [Concomitant]
  3. CODEINE CONTIN [Concomitant]
  4. CODEINE CONTIN [Concomitant]
  5. FERROUS SULFATE TAB [Concomitant]
  6. LISINOPRIL AND HYDROCHLOROTHIAZIDE [Concomitant]
     Dosage: DOSE: 10-12.5 MG
  7. LIPITOR [Concomitant]
  8. NOVO-PREDNISONE [Concomitant]
  9. METHOTREXATE [Concomitant]
     Route: 058
  10. DIPHENHYDRAMINE [Concomitant]
     Dosage: DOSE: 50 MCG CAP PRN
  11. LEUCOVORIN CALCIUM [Concomitant]
     Dosage: 5 MG 12 HOURS AFTER METHOTREXATE INJECTION
  12. ALENDRONATE SODIUM [Concomitant]
  13. RIVA D [Concomitant]
     Dosage: DOSE: 400IU 2 CAPS QD
  14. APO-FOLIC [Concomitant]
  15. LYRICA [Concomitant]
  16. FOSAMAX [Concomitant]
  17. PREVACID [Concomitant]
  18. NOVO-GESIC [Concomitant]
     Dosage: DOSE: 325 MG 2 TABS PRN

REACTIONS (2)
  - CEREBROVASCULAR ACCIDENT [None]
  - MOVEMENT DISORDER [None]
